FAERS Safety Report 7478198-0 (Version None)
Quarter: 2011Q2

REPORT INFORMATION
  Report Type: 
  Country: None (occurrence: None)
  Receive Date: 20110506
  Receipt Date: 20110422
  Transmission Date: 20111010
  Serious: Yes (Other)
  Sender: FDA-Public Use
  Company Number: JPI-P-014690

PATIENT
  Age: 66 Year
  Sex: Female
  Weight: 77.1115 kg

DRUGS (6)
  1. MULTI-VITAMIN [Concomitant]
  2. XYREM [Suspect]
     Indication: CATAPLEXY
     Dosage: ORAL 7.5 GM (3.75 GM, 2 IN 1 D),ORAL
     Route: 048
     Dates: start: 20020901
  3. XYREM [Suspect]
     Indication: HALLUCINATION
     Dosage: ORAL 7.5 GM (3.75 GM, 2 IN 1 D),ORAL
     Route: 048
     Dates: start: 20020901
  4. XYREM [Suspect]
     Indication: SOMNOLENCE
     Dosage: ORAL 7.5 GM (3.75 GM, 2 IN 1 D),ORAL
     Route: 048
     Dates: start: 20020901
  5. FLUTICASONE PROPIONATE [Concomitant]
  6. METHYLPHENIDATE [Concomitant]

REACTIONS (4)
  - TENDON RUPTURE [None]
  - ANKLE FRACTURE [None]
  - EYE PRURITUS [None]
  - FALL [None]
